FAERS Safety Report 8586928-X (Version None)
Quarter: 2012Q3

REPORT INFORMATION
  Report Type: 
  Country: None (occurrence: None)
  Receive Date: 20120810
  Receipt Date: 20120801
  Transmission Date: 20120928
  Serious: Yes (Hospitalization, Other)
  Sender: FDA-Public Use
  Company Number: PHHY2012US068148

PATIENT
  Age: 78 Year
  Sex: Female

DRUGS (3)
  1. BUFFERIN [Suspect]
     Route: 048
  2. BUFFERIN [Suspect]
     Indication: EHLERS-DANLOS SYNDROME
     Dosage: 2 DF, ONE IN THE MORNING AND ONCE MIDAFTERNOON
     Route: 048
     Dates: start: 19900101
  3. BUFFERIN [Suspect]
     Dosage: 4 DF,2 IN THE MORNING AND 2 MIDAFTERNOONS
     Route: 048

REACTIONS (12)
  - ROTATOR CUFF SYNDROME [None]
  - ROAD TRAFFIC ACCIDENT [None]
  - INCORRECT DRUG ADMINISTRATION DURATION [None]
  - FALL [None]
  - GASTROINTESTINAL INFECTION [None]
  - JOINT SWELLING [None]
  - INJECTION SITE PAIN [None]
  - OSTEOARTHRITIS [None]
  - ARTHRALGIA [None]
  - DRUG INEFFECTIVE [None]
  - INFUSION SITE INFECTION [None]
  - GAIT DISTURBANCE [None]
